FAERS Safety Report 14753541 (Version 7)
Quarter: 2019Q2

REPORT INFORMATION
  Report Type: Spontaneous
  Country: CA (occurrence: CA)
  Receive Date: 20180412
  Receipt Date: 20190604
  Transmission Date: 20190711
  Serious: Yes (Hospitalization, Other)
  Sender: FDA-Public Use
  Company Number: CA-PFIZER INC-2018027718

PATIENT
  Age: 74 Year
  Sex: Female

DRUGS (17)
  1. ROSUVASTATIN. [Concomitant]
     Active Substance: ROSUVASTATIN
     Indication: BLOOD CHOLESTEROL INCREASED
     Dosage: 10 MG, DAILY
  2. AMLODIPINE [Concomitant]
     Active Substance: AMLODIPINE BESYLATE
     Indication: HYPERTENSION
     Dosage: 5 MG, 1X/DAY
     Route: 048
  3. GABAPENTIN. [Concomitant]
     Active Substance: GABAPENTIN
     Indication: PAIN
     Dosage: 200 MG, 2X/DAY
     Route: 048
  4. HYDROMORPH CONTIN [Concomitant]
     Active Substance: HYDROMORPHONE
     Dosage: 6 MG, 2X/DAY
     Route: 048
  5. XELJANZ [Suspect]
     Active Substance: TOFACITINIB CITRATE
     Dosage: 5 MG, 2X/DAY
     Route: 048
     Dates: start: 20180405, end: 2018
  6. XELJANZ [Suspect]
     Active Substance: TOFACITINIB CITRATE
     Dosage: 5 MG, 1X/DAY
     Route: 048
     Dates: start: 2019
  7. HYDROXYCHLOROQUINE [Concomitant]
     Active Substance: HYDROXYCHLOROQUINE
     Indication: RHEUMATOID ARTHRITIS
     Dosage: 400 MG, 1X/DAY
     Dates: start: 201302
  8. FUROSEMIDE. [Concomitant]
     Active Substance: FUROSEMIDE
     Indication: OEDEMA PERIPHERAL
     Dosage: 20 MG, 1X/DAY
     Route: 048
  9. SPIRIVA [Concomitant]
     Active Substance: TIOTROPIUM BROMIDE MONOHYDRATE
     Indication: CHRONIC OBSTRUCTIVE PULMONARY DISEASE
     Dosage: 18 UG, 1X/DAY
     Route: 055
  10. SALBUTAMOL [SALBUTAMOL SULFATE] [Concomitant]
     Indication: CHRONIC OBSTRUCTIVE PULMONARY DISEASE
     Dosage: UNK, AS NEEDED
     Route: 055
  11. XELJANZ [Suspect]
     Active Substance: TOFACITINIB CITRATE
     Dosage: 5 MG, 1X/DAY
     Route: 048
     Dates: start: 2018, end: 201809
  12. PANTOPRAZOLE [Concomitant]
     Active Substance: PANTOPRAZOLE
     Indication: GASTROOESOPHAGEAL REFLUX DISEASE
     Dosage: 40 MG, 2X/DAY
     Route: 048
  13. CALCIUM [Concomitant]
     Active Substance: CALCIUM
     Dosage: 500 MG, 2X/DAY
  14. VITAMIN D3 [Concomitant]
     Active Substance: CHOLECALCIFEROL
     Dosage: 2000 IU, 1X/DAY
  15. XELJANZ [Suspect]
     Active Substance: TOFACITINIB CITRATE
     Indication: RHEUMATOID ARTHRITIS
     Dosage: 5 MG, 2X/DAY
     Route: 048
     Dates: start: 201709, end: 20180105
  16. FERROUS FUMARATE [Concomitant]
     Active Substance: FERROUS FUMARATE
     Dosage: 3, 1X/DAY
  17. VITAMIN C [Concomitant]
     Active Substance: ASCORBIC ACID
     Dosage: 500 MG, 1X/DAY

REACTIONS (17)
  - Gait disturbance [Not Recovered/Not Resolved]
  - Sepsis [Unknown]
  - Fracture [Recovered/Resolved with Sequelae]
  - Drug ineffective [Not Recovered/Not Resolved]
  - Staphylococcus test positive [Unknown]
  - Fall [Unknown]
  - Asthenia [Not Recovered/Not Resolved]
  - Sciatica [Not Recovered/Not Resolved]
  - Pneumonia [Recovered/Resolved]
  - Back pain [Unknown]
  - Escherichia infection [Unknown]
  - Groin pain [Not Recovered/Not Resolved]
  - Nasopharyngitis [Recovering/Resolving]
  - Intentional product use issue [Unknown]
  - Cystitis [Unknown]
  - Influenza [Not Recovered/Not Resolved]
  - White blood cell count increased [Unknown]

NARRATIVE: CASE EVENT DATE: 2018
